FAERS Safety Report 6824095-0 (Version None)
Quarter: 2010Q3

REPORT INFORMATION
  Report Type: 
  Country: None (occurrence: None)
  Receive Date: 20100708
  Receipt Date: 20061003
  Transmission Date: 20110219
  Serious: No
  Sender: FDA-Public Use
  Company Number: US-PFIZER INC-2006121877

PATIENT
  Age: 51 Year
  Sex: Male
  Weight: 61.69 kg

DRUGS (5)
  1. CHANTIX [Suspect]
     Indication: EX-TOBACCO USER
     Route: 048
     Dates: start: 20060914
  2. ADVAIR DISKUS 100/50 [Concomitant]
  3. SPIRIVA [Concomitant]
  4. THEOPHYLLINE [Concomitant]
  5. TRAZODONE [Concomitant]

REACTIONS (3)
  - ABNORMAL DREAMS [None]
  - CONSTIPATION [None]
  - HEADACHE [None]
